FAERS Safety Report 10398917 (Version 1)
Quarter: 2014Q1

REPORT INFORMATION
  Report Type: Spontaneous
  Country: US (occurrence: None)
  Receive Date: 20130815
  Receipt Date: 20130815
  Transmission Date: 20141002
  Serious: Yes (Other)
  Sender: FDA-Public Use
  Company Number: ADR-2012-00613

PATIENT
  Sex: Female

DRUGS (3)
  1. LIORESAL [Suspect]
     Indication: PAIN
  2. LIORESAL [Suspect]
     Indication: POST LAMINECTOMY SYNDROME
  3. ORAL BACLOFEN [Concomitant]

REACTIONS (8)
  - Underdose [None]
  - Pyrexia [None]
  - Muscle spasticity [None]
  - No therapeutic response [None]
  - Hypertension [None]
  - Drug withdrawal syndrome [None]
  - Overdose [None]
  - Mental status changes [None]
